FAERS Safety Report 13496175 (Version 3)
Quarter: 2019Q2

REPORT INFORMATION
  Report Type: Spontaneous
  Country: US (occurrence: US)
  Receive Date: 20170428
  Receipt Date: 20190415
  Transmission Date: 20190711
  Serious: Yes (Other)
  Sender: FDA-Public Use
  Company Number: US-SA-2017SA073318

PATIENT
  Age: 73 Year
  Sex: Male

DRUGS (2)
  1. TOUJEO [Suspect]
     Active Substance: INSULIN GLARGINE
     Indication: TYPE 2 DIABETES MELLITUS
     Dosage: 12-16 UNITS, QD, DAILY
     Route: 065
     Dates: start: 2015
  2. TOUJEO [Suspect]
     Active Substance: INSULIN GLARGINE
     Dosage: 40 U, DAILY

REACTIONS (4)
  - Blood glucose increased [Unknown]
  - Pain [Unknown]
  - Surgery [Unknown]
  - Wrong technique in product usage process [Unknown]
